FAERS Safety Report 5471488-2 (Version None)
Quarter: 2007Q3

REPORT INFORMATION
  Report Type: 
  Country: None (occurrence: None)
  Receive Date: 20070928
  Receipt Date: 20061113
  Transmission Date: 20080115
  Serious: No
  Sender: FDA-Public Use
  Company Number: US-BRISTOL-MYERS SQUIBB COMPANY-13576855

PATIENT
  Age: 62 Year
  Sex: Male
  Weight: 68 kg

DRUGS (13)
  1. DEFINITY [Suspect]
     Indication: ECHOCARDIOGRAM
     Route: 040
     Dates: start: 20061026, end: 20061026
  2. AMIODARONE HCL [Concomitant]
  3. WARFARIN [Concomitant]
  4. INSULIN [Concomitant]
  5. CITALOPRAM HYDROBROMIDE [Concomitant]
  6. ISOSORBIDE DINITRATE [Concomitant]
  7. TEMAZEPAM [Concomitant]
  8. METOPROLOL SUCCINATE [Concomitant]
  9. LACTULOSE [Concomitant]
  10. FINASTERIDE [Concomitant]
  11. DOCUSATE [Concomitant]
  12. FUROSEMIDE [Concomitant]
  13. HYDROXYZINE [Concomitant]

REACTIONS (1)
  - BACK PAIN [None]
